FAERS Safety Report 4400072-4 (Version None)
Quarter: 2004Q3

REPORT INFORMATION
  Report Type: 
  Country: None (occurrence: None)
  Receive Date: 20040714
  Receipt Date: 20040630
  Transmission Date: 20050211
  Serious: Yes (Other)
  Sender: FDA-Public Use
  Company Number: 2004199842DE

PATIENT
  Age: 53 Year
  Sex: Female
  Weight: 56.5 kg

DRUGS (3)
  1. GENOTROPIN MINIQUICK (SOMATROPIN) POWDER, STERILE [Suspect]
     Indication: INSULIN-LIKE GROWTH FACTOR
     Dosage: SEE IMATE
     Route: 058
     Dates: start: 20031001, end: 20040215
  2. GENOTROPIN MINIQUICK (SOMATROPIN) POWDER, STERILE [Suspect]
     Indication: INSULIN-LIKE GROWTH FACTOR
     Dosage: SEE IMATE
     Route: 058
     Dates: start: 20031001, end: 20040215
  3. CIPROFLOXACIN [Concomitant]

REACTIONS (7)
  - ARTHRALGIA [None]
  - BURSITIS [None]
  - HEADACHE [None]
  - INSULIN-LIKE GROWTH FACTOR INCREASED [None]
  - JOINT STIFFNESS [None]
  - JOINT SWELLING [None]
  - MOBILITY DECREASED [None]
